FAERS Safety Report 9902108 (Version 3)
Quarter: 2014Q2

REPORT INFORMATION
  Report Type: Report from Study
  Country: IN (occurrence: IN)
  Receive Date: 20140217
  Receipt Date: 20140607
  Transmission Date: 20141212
  Serious: Yes (Death, Hospitalization)
  Sender: FDA-Public Use
  Company Number: PHHY2014IN017203

PATIENT
  Age: 72 Year
  Sex: Male

DRUGS (6)
  1. EXELON PATCH [Suspect]
     Indication: DEMENTIA ALZHEIMER^S TYPE
     Dosage: 4.6 MG PER DAY (5 CM)
     Route: 062
     Dates: end: 20140204
  2. EXELON PATCH [Suspect]
     Indication: PARKINSON^S DISEASE
  3. AMANTREL [Concomitant]
     Dosage: UNK UKN, UNK
     Route: 048
  4. ROPARK [Concomitant]
     Dosage: UNK UKN, UNK
     Route: 048
  5. SYNDOPA PLUS [Concomitant]
     Dosage: UNK UKN, UNK
     Route: 048
  6. ATENOLOL [Concomitant]
     Indication: HYPERTENSION
     Dosage: 50 MG, PER DAY
     Route: 048

REACTIONS (5)
  - VIIth nerve paralysis [Fatal]
  - Trismus [Fatal]
  - Dysphagia [Fatal]
  - Mastication disorder [Fatal]
  - Drug ineffective [Unknown]
